FAERS Safety Report 16687929 (Version 1)
Quarter: 2019Q4

REPORT INFORMATION
  Report Type: Spontaneous
  Country: US (occurrence: US)
  Receive Date: 20190808
  Receipt Date: 20190808
  Transmission Date: 20200122
  Serious: Yes (Other)
  Sender: FDA-Public Use
  Company Number: None

PATIENT
  Age: 26 Year
  Sex: Female
  Weight: 94.5 kg

DRUGS (2)
  1. ORILISSA [Suspect]
     Active Substance: ELAGOLIX SODIUM
     Indication: ENDOMETRIOSIS
  2. WOMENS ONE A DAY VITAMINS [Concomitant]

REACTIONS (5)
  - Dizziness [None]
  - Heart rate increased [None]
  - Dyspnoea [None]
  - Cough [None]
  - Nasopharyngitis [None]

NARRATIVE: CASE EVENT DATE: 20190701
